FAERS Safety Report 22174262 (Version 4)
Quarter: 2023Q4

REPORT INFORMATION
  Report Type: Other
  Country: AU (occurrence: None)
  Receive Date: 20230405
  Receipt Date: 20231106
  Transmission Date: 20240109
  Serious: Yes (Other)
  Sender: FDA-Public Use
  Company Number: AU-ROCHE-3324170

PATIENT
  Age: 37 Year
  Sex: Female

DRUGS (1)
  1. OCRELIZUMAB [Suspect]
     Active Substance: OCRELIZUMAB
     Indication: Multiple sclerosis
     Route: 042
     Dates: start: 20230331, end: 20230331

REACTIONS (4)
  - Fatigue [Unknown]
  - COVID-19 [Recovered/Resolved]
  - Malaise [Unknown]
  - Tonsillitis [Unknown]

NARRATIVE: CASE EVENT DATE: 20230926
